FAERS Safety Report 7423149-8 (Version None)
Quarter: 2011Q2

REPORT INFORMATION
  Report Type: 
  Country: None (occurrence: None)
  Receive Date: 20110413
  Receipt Date: 20110413
  Transmission Date: 20111010
  Serious: Yes (Congenital Anomaly)
  Sender: FDA-Public Use
  Company Number: None

PATIENT
  Age: 22 Year
  Sex: Female
  Weight: 58.9676 kg

DRUGS (1)
  1. MIRENA [Suspect]
     Indication: CONTRACEPTION
     Dosage: INTRA-UTERINE
     Route: 015
     Dates: start: 20060810, end: 20080312

REACTIONS (4)
  - TRISOMY 21 [None]
  - ATRIOVENTRICULAR SEPTAL DEFECT [None]
  - DRUG EXPOSURE BEFORE PREGNANCY [None]
  - DUODENAL ATRESIA [None]
